FAERS Safety Report 5301541-5 (Version None)
Quarter: 2007Q2

REPORT INFORMATION
  Report Type: 
  Country: None (occurrence: None)
  Receive Date: 20070412
  Receipt Date: 20070330
  Transmission Date: 20071010
  Serious: Yes (Death, Hospitalization)
  Sender: FDA-Public Use
  Company Number: 100#03#2007-01027

PATIENT
  Age: 65 Year
  Sex: Male

DRUGS (9)
  1. PRAVASTATIN [Suspect]
     Indication: HYPERCHOLESTEROLAEMIA
  2. ZOCOR [Suspect]
     Indication: HYPERCHOLESTEROLAEMIA
     Dosage: SEE IMAGE
     Route: 048
     Dates: start: 20000501, end: 20000930
  3. ZOCOR [Suspect]
     Indication: HYPERCHOLESTEROLAEMIA
     Dosage: SEE IMAGE
     Route: 048
     Dates: start: 20000930, end: 20001030
  4. ACETYLSALICYLIC ACID (ACETYLSALICYLIC ACID) (ACETYLSALICYLIC ACID) [Concomitant]
  5. ATENOLOL [Concomitant]
  6. CIMETIDINE (CIMETIDINE) (CIMETIDINE) [Concomitant]
  7. CIPROFLOXACIN [Concomitant]
  8. ENALAPRIL MALEATE (ENALAPRIL) (ENALAPRIL) [Concomitant]
  9. RAMIPRIL (RAMIPRIL) (RAMIPRIL) [Concomitant]

REACTIONS (15)
  - BLOOD ALBUMIN DECREASED [None]
  - BLOOD UREA INCREASED [None]
  - COLITIS ULCERATIVE [None]
  - DEHYDRATION [None]
  - GASTROINTESTINAL NECROSIS [None]
  - GASTROINTESTINAL STOMA COMPLICATION [None]
  - HAEMOGLOBIN DECREASED [None]
  - INTESTINAL PERFORATION [None]
  - MEGACOLON [None]
  - MULTI-ORGAN FAILURE [None]
  - NECROSIS [None]
  - PERITONITIS [None]
  - PROCTALGIA [None]
  - PROCTITIS [None]
  - SEPTIC SHOCK [None]
